FAERS Safety Report 5042288-2 (Version None)
Quarter: 2006Q2

REPORT INFORMATION
  Report Type: 
  Country: None (occurrence: None)
  Receive Date: 20060627
  Receipt Date: 20060609
  Transmission Date: 20061013
  Serious: Yes (Other)
  Sender: FDA-Public Use
  Company Number: 2006US-02654

PATIENT
  Age: 22 Year
  Sex: Female

DRUGS (2)
  1. ISOTRETINOIN [Suspect]
  2. ORAL CONTACEPTIVE (ORAL CONTRACEPTIVE) [Suspect]
     Dosage: ORAL
     Route: 048

REACTIONS (2)
  - ADVERSE EVENT [None]
  - DRUG INTERACTION [None]
